FAERS Safety Report 7430310-5 (Version None)
Quarter: 2011Q2

REPORT INFORMATION
  Report Type: 
  Country: None (occurrence: None)
  Receive Date: 20110419
  Receipt Date: 20110419
  Transmission Date: 20111010
  Serious: Yes (Other)
  Sender: FDA-Public Use
  Company Number: None

PATIENT
  Age: 46 Year
  Sex: Female
  Weight: 91.173 kg

DRUGS (2)
  1. ACIPHEX [Concomitant]
  2. LOSARTAN POTASSIUM AND HYDROCHLOROTHIAZIDE [Suspect]
     Indication: HYPERTENSION
     Dosage: 1 TAB DAILY PO
     Route: 048
     Dates: start: 20110301, end: 20110418

REACTIONS (12)
  - PARAESTHESIA [None]
  - DYSPNOEA [None]
  - RASH [None]
  - HYPOAESTHESIA [None]
  - HEADACHE [None]
  - SLUGGISHNESS [None]
  - FATIGUE [None]
  - TINNITUS [None]
  - PRURITUS [None]
  - DIZZINESS [None]
  - MYALGIA [None]
  - MIDDLE INSOMNIA [None]
